FAERS Safety Report 8772873 (Version 1)
Quarter: 2012Q4

REPORT INFORMATION
  Report Type: 
  Country: US (occurrence: US)
  Receive Date: 20120907
  Receipt Date: 20120907
  Transmission Date: 20130627
  Serious: No
  Sender: FDA-Public Use
  Company Number: US-TEVA-357469USA

PATIENT
  Sex: Male

DRUGS (1)
  1. PROAIR HFA [Suspect]
     Route: 055

REACTIONS (4)
  - Paraesthesia oral [Unknown]
  - Glossodynia [Unknown]
  - Tongue blistering [Unknown]
  - Drug ineffective [Unknown]
